FAERS Safety Report 6915174-8 (Version None)
Quarter: 2010Q3

REPORT INFORMATION
  Report Type: 
  Country: None (occurrence: None)
  Receive Date: 20100805
  Receipt Date: 20100805
  Transmission Date: 20110219
  Serious: No
  Sender: FDA-Public Use
  Company Number: None

PATIENT
  Age: 85 Year
  Sex: Male
  Weight: 65.7716 kg

DRUGS (1)
  1. HYDROCHLOROTHIAZIDE [Suspect]
     Indication: HYPERTENSION
     Dosage: 1 CAPSULE DAILY PO
     Route: 048
     Dates: start: 20100201, end: 20100803

REACTIONS (3)
  - DIZZINESS [None]
  - DRY MOUTH [None]
  - DYSPNOEA [None]
